FAERS Safety Report 20100161 (Version 2)
Quarter: 2021Q4

REPORT INFORMATION
  Report Type: Spontaneous
  Country: JP (occurrence: JP)
  Receive Date: 20211123
  Receipt Date: 20211225
  Transmission Date: 20220303
  Serious: Yes (Hospitalization, Other)
  Sender: FDA-Public Use
  Company Number: JP-AMGEN-JPNSP2021183142

PATIENT
  Age: 78 Year
  Sex: Female

DRUGS (1)
  1. EVENITY [Suspect]
     Active Substance: ROMOSOZUMAB-AQQG
     Indication: Osteoporosis
     Dosage: 105 MILLIGRAM  TWICE MONTHLY
     Route: 058
     Dates: start: 20210925

REACTIONS (4)
  - Pyelitis [Recovered/Resolved]
  - Sepsis [Recovered/Resolved]
  - Urinary tract infection [Unknown]
  - Off label use [Unknown]

NARRATIVE: CASE EVENT DATE: 20210101
